FAERS Safety Report 17407086 (Version 1)
Quarter: 2020Q1

REPORT INFORMATION
  Report Type: Spontaneous
  Country: US (occurrence: US)
  Receive Date: 20200128
  Receipt Date: 20200128
  Transmission Date: 20200409
  Serious: No
  Sender: FDA-Public Use
  Company Number: None

PATIENT
  Age: 68 Year
  Sex: Male

DRUGS (1)
  1. CYCLOSPORINE MODIFIED [Suspect]
     Active Substance: CYCLOSPORINE
     Indication: CHORIORETINITIS
     Route: 048
     Dates: start: 201901

REACTIONS (3)
  - Tongue coated [None]
  - Ageusia [None]
  - Coating in mouth [None]

NARRATIVE: CASE EVENT DATE: 20200128
